FAERS Safety Report 10456639 (Version 1)
Quarter: 2014Q3

REPORT INFORMATION
  Report Type: Spontaneous
  Country: US (occurrence: US)
  Receive Date: 20140916
  Receipt Date: 20140916
  Transmission Date: 20150326
  Serious: Yes (Other)
  Sender: FDA-Public Use
  Company Number: PHEH2014US017654

PATIENT
  Sex: Female

DRUGS (9)
  1. ESTRADIOL. [Concomitant]
     Active Substance: ESTRADIOL
     Dosage: UNK UKN, UNK
  2. FISH OIL [Concomitant]
     Active Substance: FISH OIL
     Dosage: 300 MG, UNK
  3. TEGRETOL [Suspect]
     Active Substance: CARBAMAZEPINE
     Dosage: 200 MG, BID
     Dates: end: 201312
  4. LISINOPRIL. [Concomitant]
     Active Substance: LISINOPRIL
     Indication: BLOOD PRESSURE
     Dosage: UNK UKN, UNK
  5. GINKGO BILOBA [Concomitant]
     Active Substance: GINKGO
     Dosage: 120 MG, UNK
  6. VITAMIN D [Concomitant]
     Active Substance: CHOLECALCIFEROL
     Dosage: UNK UKN, UNK
  7. LAMOTRIGINE. [Concomitant]
     Active Substance: LAMOTRIGINE
     Dosage: 200 MG, UNK
  8. OMEPRAZOLE. [Concomitant]
     Active Substance: OMEPRAZOLE
     Dosage: 20 MG, UNK
  9. ASPIRIN. [Concomitant]
     Active Substance: ASPIRIN
     Dosage: UNK UKN, UNK

REACTIONS (10)
  - Lower limb fracture [Unknown]
  - Loss of consciousness [Unknown]
  - Cerebrovascular accident [Unknown]
  - Upper limb fracture [Unknown]
  - Walking disability [Unknown]
  - Bone disorder [Unknown]
  - Insomnia [Unknown]
  - Convulsion [Unknown]
  - Nervous system disorder [Unknown]
  - Blood sodium decreased [Unknown]
